FAERS Safety Report 24594881 (Version 4)
Quarter: 2025Q3

REPORT INFORMATION
  Report Type: Report from Study
  Country: JP (occurrence: JP)
  Receive Date: 20241108
  Receipt Date: 20250804
  Transmission Date: 20251020
  Serious: Yes (Other)
  Sender: ALEXION PHARMACEUTICALS
  Company Number: JP-ASTRAZENECA-240061360_013820_P_1

PATIENT
  Age: 67 Year
  Sex: Male
  Weight: 56 kg

DRUGS (38)
  1. ACALABRUTINIB [Suspect]
     Active Substance: ACALABRUTINIB
     Indication: Chronic lymphocytic leukaemia
     Dosage: 100 MILLIGRAM, BID
     Dates: start: 20231116, end: 20240209
  2. ACALABRUTINIB [Suspect]
     Active Substance: ACALABRUTINIB
     Dates: start: 20240215
  3. SULFAMETHOXAZOLE\TRIMETHOPRIM [Suspect]
     Active Substance: SULFAMETHOXAZOLE\TRIMETHOPRIM
  4. SULFAMETHOXAZOLE\TRIMETHOPRIM [Suspect]
     Active Substance: SULFAMETHOXAZOLE\TRIMETHOPRIM
     Route: 065
  5. SULFAMETHOXAZOLE\TRIMETHOPRIM [Suspect]
     Active Substance: SULFAMETHOXAZOLE\TRIMETHOPRIM
     Route: 065
  6. GAZYVA [Suspect]
     Active Substance: OBINUTUZUMAB
     Indication: Chronic lymphocytic leukaemia
     Route: 065
     Dates: start: 20231214, end: 20231214
  7. GAZYVA [Suspect]
     Active Substance: OBINUTUZUMAB
     Route: 065
     Dates: start: 20231215, end: 20231215
  8. GAZYVA [Suspect]
     Active Substance: OBINUTUZUMAB
     Route: 065
     Dates: start: 20240111, end: 20240111
  9. GAZYVA [Suspect]
     Active Substance: OBINUTUZUMAB
     Route: 065
     Dates: start: 20240215, end: 20240215
  10. GAZYVA [Suspect]
     Active Substance: OBINUTUZUMAB
     Route: 065
     Dates: start: 20240328, end: 20240328
  11. GAZYVA [Suspect]
     Active Substance: OBINUTUZUMAB
     Route: 065
     Dates: start: 20240425, end: 20240425
  12. GAZYVA [Suspect]
     Active Substance: OBINUTUZUMAB
     Route: 065
     Dates: start: 20240523, end: 20240523
  13. FEBUXOSTAT [Concomitant]
     Active Substance: FEBUXOSTAT
     Indication: Prophylaxis
     Route: 065
  14. FEBUXOSTAT [Concomitant]
     Active Substance: FEBUXOSTAT
     Route: 065
  15. FEBUXOSTAT [Concomitant]
     Active Substance: FEBUXOSTAT
  16. FEBUXOSTAT [Concomitant]
     Active Substance: FEBUXOSTAT
  17. FEBUXOSTAT [Concomitant]
     Active Substance: FEBUXOSTAT
  18. FEBUXOSTAT [Concomitant]
     Active Substance: FEBUXOSTAT
  19. FEBUXOSTAT [Concomitant]
     Active Substance: FEBUXOSTAT
  20. FEBUXOSTAT [Concomitant]
     Active Substance: FEBUXOSTAT
  21. FEBUXOSTAT [Concomitant]
     Active Substance: FEBUXOSTAT
  22. FEBUXOSTAT [Concomitant]
     Active Substance: FEBUXOSTAT
  23. FEBUXOSTAT [Concomitant]
     Active Substance: FEBUXOSTAT
  24. FEBUXOSTAT [Concomitant]
     Active Substance: FEBUXOSTAT
  25. FEBUXOSTAT [Concomitant]
     Active Substance: FEBUXOSTAT
  26. FEBUXOSTAT [Concomitant]
     Active Substance: FEBUXOSTAT
  27. DEXMEDETOMIDINE [Concomitant]
     Active Substance: DEXMEDETOMIDINE
     Route: 065
  28. DEXMEDETOMIDINE [Concomitant]
     Active Substance: DEXMEDETOMIDINE
     Route: 065
  29. DEXMEDETOMIDINE [Concomitant]
     Active Substance: DEXMEDETOMIDINE
     Route: 065
  30. DEXMEDETOMIDINE [Concomitant]
     Active Substance: DEXMEDETOMIDINE
     Route: 065
  31. SULFAMETHOXAZOLE\TRIMETHOPRIM [Concomitant]
     Active Substance: SULFAMETHOXAZOLE\TRIMETHOPRIM
     Indication: Prophylaxis
  32. SULFAMETHOXAZOLE\TRIMETHOPRIM [Concomitant]
     Active Substance: SULFAMETHOXAZOLE\TRIMETHOPRIM
  33. SULFAMETHOXAZOLE\TRIMETHOPRIM [Concomitant]
     Active Substance: SULFAMETHOXAZOLE\TRIMETHOPRIM
  34. ATOVAQUONE [Concomitant]
     Active Substance: ATOVAQUONE
     Indication: Prophylaxis
  35. ATOVAQUONE [Concomitant]
     Active Substance: ATOVAQUONE
  36. ATOVAQUONE [Concomitant]
     Active Substance: ATOVAQUONE
  37. DEXAMETHASONE SODIUM PHOSPHATE [Concomitant]
     Active Substance: DEXAMETHASONE SODIUM PHOSPHATE
     Indication: Infusion related reaction
     Route: 065
  38. OBINUTUZUMAB [Concomitant]
     Active Substance: OBINUTUZUMAB
     Indication: Chronic lymphocytic leukaemia
     Route: 065

REACTIONS (7)
  - Anaemia [Recovered/Resolved]
  - Neutrophil count decreased [Recovered/Resolved]
  - Dermatitis acneiform [Recovered/Resolved]
  - Tumour lysis syndrome [Recovered/Resolved]
  - Herpes zoster [Recovered/Resolved]
  - Upper respiratory tract inflammation [Recovered/Resolved]
  - Platelet count decreased [Recovered/Resolved]

NARRATIVE: CASE EVENT DATE: 20231215
